FAERS Safety Report 11428541 (Version 1)
Quarter: 2015Q3

REPORT INFORMATION
  Report Type: Spontaneous
  Country: US (occurrence: US)
  Receive Date: 20150828
  Receipt Date: 20150828
  Transmission Date: 20151125
  Serious: No
  Sender: FDA-Public Use
  Company Number: US-ROCHE-1249560

PATIENT
  Sex: Female

DRUGS (4)
  1. RIBAVIRIN. [Suspect]
     Active Substance: RIBAVIRIN
     Indication: CHRONIC HEPATITIS C
     Dosage: IN DIVIDED DOSES:400/600
     Route: 065
     Dates: start: 20120724, end: 201211
  2. RIBAVIRIN. [Suspect]
     Active Substance: RIBAVIRIN
     Dosage: IN DIVIDES DOSES:200/400
     Route: 065
     Dates: start: 201211, end: 20130618
  3. TELAPREVIR [Suspect]
     Active Substance: TELAPREVIR
     Indication: CHRONIC HEPATITIS C
     Route: 065
     Dates: start: 20120724, end: 20130718
  4. PEGASYS [Suspect]
     Active Substance: PEGINTERFERON ALFA-2A
     Indication: CHRONIC HEPATITIS C
     Route: 058
     Dates: start: 20120724, end: 20130618

REACTIONS (12)
  - Diabetes mellitus [Unknown]
  - Diarrhoea [Unknown]
  - Anaemia [Unknown]
  - Synovial cyst [Unknown]
  - Hypertension [Not Recovered/Not Resolved]
  - Dysgeusia [Unknown]
  - Alopecia [Unknown]
  - Decreased appetite [Unknown]
  - Pruritus [Unknown]
  - Abdominal mass [Unknown]
  - Rash [Unknown]
  - Upper extremity mass [Unknown]
